FAERS Safety Report 4947594-5 (Version None)
Quarter: 2006Q1

REPORT INFORMATION
  Report Type: 
  Country: None (occurrence: None)
  Receive Date: 20060314
  Receipt Date: 20060306
  Transmission Date: 20060701
  Serious: Yes (Death)
  Sender: FDA-Public Use
  Company Number: 060306-0000195

PATIENT
  Age: 36 Year
  Sex: Female

DRUGS (3)
  1. METHAMPHETAMINE HYDROCHLORIDE [Suspect]
  2. AMITRIPTYLINE (AMITRIPTYLINE) [Suspect]
     Dosage: PO
     Route: 048
  3. PAROXETINE (PAROXETINE) [Suspect]
     Dosage: PO
     Route: 048

REACTIONS (1)
  - CARDIO-RESPIRATORY ARREST [None]
